FAERS Safety Report 6425155-9 (Version None)
Quarter: 2009Q4

REPORT INFORMATION
  Report Type: 
  Country: None (occurrence: None)
  Receive Date: 20091029
  Receipt Date: 20090903
  Transmission Date: 20100525
  Serious: Yes (Other)
  Sender: FDA-Public Use
  Company Number: 87004

PATIENT
  Age: 30 Year
  Sex: Female

DRUGS (1)
  1. CARBOPLATIN [Suspect]
     Indication: BREAST CANCER

REACTIONS (3)
  - BLISTER [None]
  - ERYTHEMA [None]
  - SKIN EXFOLIATION [None]
